FAERS Safety Report 8540773-X (Version None)
Quarter: 2012Q3

REPORT INFORMATION
  Report Type: 
  Country: None (occurrence: None)
  Receive Date: 20120726
  Receipt Date: 20120724
  Transmission Date: 20120928
  Serious: Yes (Hospitalization)
  Sender: FDA-Public Use
  Company Number: PHHO2012DE009072

PATIENT
  Age: 34 Year
  Sex: Female
  Weight: 54 kg

DRUGS (4)
  1. MYCOPHENOLIC ACID [Suspect]
     Dosage: 360 MG, QD
     Route: 048
  2. MYCOPHENOLIC ACID [Suspect]
     Indication: PANCREAS TRANSPLANT
     Dosage: 720 MG, QD
     Route: 048
     Dates: start: 20111203, end: 20120119
  3. PREDNISOLONE [Suspect]
     Dosage: 5 MG, QD
     Route: 048
     Dates: start: 20111203
  4. TACROLIMUS [Suspect]
     Dosage: 5.5 MG, QD
     Route: 048
     Dates: start: 20111203

REACTIONS (4)
  - CLOSTRIDIUM COLITIS [None]
  - UROSEPSIS [None]
  - CYSTITIS ESCHERICHIA [None]
  - ARTERIAL THROMBOSIS [None]
